FAERS Safety Report 6514677-8 (Version None)
Quarter: 2009Q4

REPORT INFORMATION
  Report Type: 
  Country: None (occurrence: None)
  Receive Date: 20091222
  Receipt Date: 20091222
  Transmission Date: 20100525
  Serious: Yes (Other)
  Sender: FDA-Public Use
  Company Number: None

PATIENT
  Sex: Female
  Weight: 58.514 kg

DRUGS (1)
  1. ZOLOFT [Suspect]
     Indication: PANIC DISORDER
     Dosage: 100MG ONE QD P.O.
     Route: 048
     Dates: start: 20071201

REACTIONS (3)
  - INSOMNIA [None]
  - NIGHTMARE [None]
  - PRODUCT SUBSTITUTION ISSUE [None]
